FAERS Safety Report 4886774-4 (Version None)
Quarter: 2006Q1

REPORT INFORMATION
  Report Type: 
  Country: None (occurrence: None)
  Receive Date: 20060119
  Receipt Date: 20060111
  Transmission Date: 20060701
  Serious: Yes (Hospitalization)
  Sender: FDA-Public Use
  Company Number: 2006BI000525

PATIENT
  Age: 35 Year
  Sex: Female
  Weight: 62 kg

DRUGS (2)
  1. AVONEX [Suspect]
     Dosage: 30 UG; QW; IM
     Route: 030
     Dates: start: 20000101
  2. AVONEX [Suspect]
     Indication: MULTIPLE SCLEROSIS
     Dosage: 30 UG; QW; IM
     Route: 030

REACTIONS (9)
  - APHASIA [None]
  - CONDITION AGGRAVATED [None]
  - EPILEPSY [None]
  - EYE MOVEMENT DISORDER [None]
  - FAECAL INCONTINENCE [None]
  - MOVEMENT DISORDER [None]
  - MUSCLE SPASMS [None]
  - TREMOR [None]
  - URINARY INCONTINENCE [None]
